FAERS Safety Report 9282779 (Version 1)
Quarter: 2013Q2

REPORT INFORMATION
  Report Type: Spontaneous
  Country: US (occurrence: None)
  Receive Date: 20130506
  Receipt Date: 20130506
  Transmission Date: 20140414
  Serious: Yes (Other)
  Sender: FDA-Public Use
  Company Number: 2013AP004880

PATIENT
  Age: 79 Year
  Sex: Female

DRUGS (6)
  1. CIPROFLOXACIN [Suspect]
  2. ATORVASTATIN [Concomitant]
  3. VANCOMYCIN [Suspect]
  4. TORADOL [Suspect]
  5. ASPIRIN [Suspect]
  6. SPIRONOLACTONE [Suspect]

REACTIONS (2)
  - Drug reaction with eosinophilia and systemic symptoms [None]
  - Ischaemic stroke [None]
